FAERS Safety Report 7660555-0 (Version None)
Quarter: 2011Q3

REPORT INFORMATION
  Report Type: 
  Country: None (occurrence: None)
  Receive Date: 20110805
  Receipt Date: 20101029
  Transmission Date: 20111222
  Serious: No
  Sender: FDA-Public Use
  Company Number: US-ABBOTT-10P-163-0682252-00

PATIENT
  Sex: Male
  Weight: 112.59 kg

DRUGS (5)
  1. GAVISCON [Concomitant]
     Indication: PRODUCT USED FOR UNKNOWN INDICATION
  2. BLOOD PRESSURE MEDICATION [Concomitant]
     Indication: BLOOD PRESSURE
  3. ASPIRIN [Concomitant]
     Indication: PRODUCT USED FOR UNKNOWN INDICATION
  4. NIASPAN [Suspect]
     Dosage: TAPERING TO TOTAL 2000 MG DAILY AT NIGHT
     Dates: start: 20100929
  5. NIASPAN [Suspect]
     Indication: HYPERLIPIDAEMIA
     Dosage: 500 MG DAILY AT BEDTIME
     Dates: start: 20100401

REACTIONS (4)
  - NAUSEA [None]
  - FEELING HOT [None]
  - PARAESTHESIA [None]
  - FLUSHING [None]
